FAERS Safety Report 9041987 (Version 1)
Quarter: 2013Q1

REPORT INFORMATION
  Report Type: Report from Study
  Country: US (occurrence: US)
  Receive Date: 20130129
  Receipt Date: 20130129
  Transmission Date: 20140127
  Serious: No
  Sender: FDA-Public Use
  Company Number: US-ABBOTT-12P-163-0905026-00

PATIENT
  Age: 42 Year
  Sex: Female

DRUGS (9)
  1. HUMIRA 40 MG/0.8 ML PEN [Suspect]
     Indication: CROHN^S DISEASE
     Dates: start: 20120106
  2. CITALOPRAM [Concomitant]
     Indication: ANXIETY
     Dosage: 40 MG DAILY
  3. CLONAZEPAM [Concomitant]
     Indication: ANXIETY
     Dosage: 1 MG DAILY
  4. LORAZEPAM [Concomitant]
     Indication: PANIC ATTACK
  5. NEXIUM [Concomitant]
     Indication: DYSPEPSIA
     Dosage: DAILY
  6. TYLENOL [Concomitant]
     Indication: PAIN
  7. CHOLESTYRAMINE [Concomitant]
     Indication: PROPHYLAXIS
     Dosage: 1/2 TO 1 PACKET DAILY
  8. VITAMINS [Concomitant]
     Indication: PRODUCT USED FOR UNKNOWN INDICATION
     Dosage: DAILY
  9. PROBIOTIC [Concomitant]
     Indication: PRODUCT USED FOR UNKNOWN INDICATION
     Dosage: DAILY

REACTIONS (3)
  - Fungal infection [Unknown]
  - Pain in extremity [Unknown]
  - Erythema [Unknown]
